FAERS Safety Report 6099502-4 (Version None)
Quarter: 2009Q1

REPORT INFORMATION
  Report Type: 
  Country: None (occurrence: None)
  Receive Date: 20090303
  Receipt Date: 20090219
  Transmission Date: 20090719
  Serious: Yes (Life-Threatening)
  Sender: FDA-Public Use
  Company Number: JP-BAYER-200910142BYL

PATIENT
  Age: 78 Year
  Sex: Female
  Weight: 62 kg

DRUGS (4)
  1. NEXAVAR [Suspect]
     Indication: RENAL CELL CARCINOMA STAGE IV
     Dosage: TOTAL DAILY DOSE: 800 MG  UNIT DOSE: 200 MG
     Route: 048
     Dates: start: 20081208, end: 20090104
  2. NEXAVAR [Suspect]
     Dosage: TOTAL DAILY DOSE: 400 MG  UNIT DOSE: 200 MG
     Route: 048
     Dates: start: 20090105, end: 20090114
  3. KERATINAMIN [Concomitant]
     Indication: PROPHYLAXIS
     Route: 061
     Dates: start: 20081208, end: 20081208
  4. MOBIC [Concomitant]
     Route: 048
     Dates: start: 20081222, end: 20090114

REACTIONS (4)
  - AORTIC DISSECTION [None]
  - HYPERTENSION [None]
  - MALAISE [None]
  - RASH [None]
